FAERS Safety Report 10132657 (Version 1)
Quarter: 2014Q2

REPORT INFORMATION
  Report Type: Spontaneous
  Country: US (occurrence: US)
  Receive Date: 20140428
  Receipt Date: 20140428
  Transmission Date: 20141212
  Serious: Yes (Other)
  Sender: FDA-Public Use
  Company Number: US-MALLINCKRODT-T201400036

PATIENT
  Age: 25 Year
  Sex: Female
  Weight: 63.49 kg

DRUGS (1)
  1. HYDROCODONE/ACETAMINOPHEN [Suspect]
     Indication: PAIN
     Dosage: 7.5/325 MG, Q 4-6 HOURS
     Route: 048
     Dates: start: 20140105, end: 20140109

REACTIONS (3)
  - Loss of consciousness [Recovered/Resolved]
  - Dizziness [Recovering/Resolving]
  - Drug ineffective [Not Recovered/Not Resolved]
